FAERS Safety Report 6121650-0 (Version None)
Quarter: 2009Q1

REPORT INFORMATION
  Report Type: 
  Country: None (occurrence: None)
  Receive Date: 20090317
  Receipt Date: 20090302
  Transmission Date: 20090719
  Serious: Yes (Death, Hospitalization)
  Sender: FDA-Public Use
  Company Number: IR-GENENTECH-278889

PATIENT
  Age: 67 Year
  Sex: Male

DRUGS (5)
  1. MABTHERA [Suspect]
     Indication: LYMPHADENOPATHY
     Dosage: 375 MG/M2, UNK
     Route: 042
  2. CYCLOPHOSPHAMIDE [Concomitant]
     Indication: LYMPHADENOPATHY
  3. DOXORUBICIN HCL [Concomitant]
     Indication: LYMPHADENOPATHY
  4. VINCRISTINE [Concomitant]
     Indication: LYMPHADENOPATHY
  5. PREDNISOLONE [Concomitant]
     Indication: LYMPHADENOPATHY

REACTIONS (1)
  - DIARRHOEA [None]
